FAERS Safety Report 16956223 (Version 1)
Quarter: 2019Q4

REPORT INFORMATION
  Report Type: Spontaneous
  Country: US (occurrence: US)
  Receive Date: 20191023
  Receipt Date: 20191023
  Transmission Date: 20200122
  Serious: Yes (Death)
  Sender: FDA-Public Use
  Company Number: None

PATIENT
  Age: 88 Year
  Sex: Female

DRUGS (1)
  1. HUMIRA [Suspect]
     Active Substance: ADALIMUMAB
     Indication: RHEUMATOID ARTHRITIS
     Dosage: ??          OTHER FREQUENCY:Q 14 DAYS;?
     Route: 058
     Dates: start: 20180131

REACTIONS (1)
  - Death [None]

NARRATIVE: CASE EVENT DATE: 20190628
